FAERS Safety Report 20849731 (Version 3)
Quarter: 2022Q3

REPORT INFORMATION
  Report Type: Spontaneous
  Country: JP (occurrence: JP)
  Receive Date: 20220519
  Receipt Date: 20220704
  Transmission Date: 20221027
  Serious: No
  Sender: FDA-Public Use
  Company Number: JP-GLAXOSMITHKLINE-JP2022JPN078460

PATIENT

DRUGS (9)
  1. SOTROVIMAB [Suspect]
     Active Substance: SOTROVIMAB
     Indication: COVID-19
     Dosage: 500 MG
     Dates: start: 20220511
  2. AMBROXOL HYDROCHLORIDE [Suspect]
     Active Substance: AMBROXOL HYDROCHLORIDE
     Indication: Symptomatic treatment
     Dosage: 45 MG
     Dates: start: 20220511
  3. FEXOFENADINE HYDROCHLORIDE [Suspect]
     Active Substance: FEXOFENADINE HYDROCHLORIDE
     Indication: Seasonal allergy
     Dosage: 120 MG
     Dates: start: 20220408
  4. MAGNESIUM OXIDE [Suspect]
     Active Substance: MAGNESIUM OXIDE
     Indication: Constipation
     Dosage: 1980 MG
     Dates: start: 20220426
  5. CLOPERASTINE [Suspect]
     Active Substance: CLOPERASTINE
     Indication: Symptomatic treatment
     Dosage: 30 MG
     Dates: start: 20220511
  6. CARBOCYSTEINE [Suspect]
     Active Substance: CARBOCYSTEINE
     Indication: Symptomatic treatment
     Dosage: 1500 MG
     Dates: start: 20220511
  7. MIYA-BM [Suspect]
     Active Substance: CLOSTRIDIUM BUTYRICUM SPORES STRAIN M-55
     Indication: Symptomatic treatment
     Dosage: 6 DF
     Dates: start: 20220511
  8. CALONAL [Suspect]
     Active Substance: ACETAMINOPHEN
     Indication: Symptomatic treatment
     Dosage: 600 MG
     Dates: start: 20220511
  9. DEQUALINIUM CHLORIDE [Suspect]
     Active Substance: DEQUALINIUM CHLORIDE
     Indication: Symptomatic treatment
     Dosage: 1.5 MG
     Dates: start: 20220513

REACTIONS (2)
  - Exposure during pregnancy [Unknown]
  - Live birth [Unknown]
